FAERS Safety Report 6147513-2 (Version None)
Quarter: 2009Q2

REPORT INFORMATION
  Report Type: 
  Country: None (occurrence: None)
  Receive Date: 20090402
  Receipt Date: 20090320
  Transmission Date: 20091009
  Serious: Yes (Death)
  Sender: FDA-Public Use
  Company Number: 2009000872

PATIENT
  Age: 53 Year
  Sex: Female

DRUGS (2)
  1. ERLOTINIB (ERLOTINIB) (TABLET) (ERLOTINIB) [Suspect]
     Indication: NON-SMALL CELL LUNG CANCER
     Dosage: 150 MG, QD, ORAL
     Route: 048
     Dates: start: 20090226, end: 20090309
  2. RO4858696/PLACEBO [Suspect]
     Indication: NON-SMALL CELL LUNG CANCER
     Dosage: 16 MG/KG, EVERY 3 WEEKS, INTRAVENOUS
     Route: 042
     Dates: start: 20090226, end: 20090309

REACTIONS (3)
  - DISEASE COMPLICATION [None]
  - INFECTION [None]
  - RESPIRATORY FAILURE [None]
